FAERS Safety Report 11271734 (Version 5)
Quarter: 2015Q4

REPORT INFORMATION
  Report Type: Spontaneous
  Country: AU (occurrence: AU)
  Receive Date: 20150715
  Receipt Date: 20151030
  Transmission Date: 20160304
  Serious: Yes (Death, Hospitalization, Other)
  Sender: FDA-Public Use
  Company Number: AU-UCBSA-2015022342

PATIENT
  Age: 72 Year
  Sex: Male

DRUGS (10)
  1. CIMZIA [Suspect]
     Active Substance: CERTOLIZUMAB PEGOL
     Indication: RHEUMATOID ARTHRITIS
     Dosage: UNK,(PLACEBO OR CIMZIA 200MG Q2W)
     Dates: start: 20130102, end: 20140109
  2. DICLOXACILLIN [Concomitant]
     Active Substance: DICLOXACILLIN
     Indication: DIARRHOEA
  3. CEPHALEXIN. [Concomitant]
     Active Substance: CEPHALEXIN
     Indication: CELLULITIS
     Dosage: 1 G, 4X/DAY (QID)
     Route: 048
     Dates: start: 20150705, end: 20150706
  4. DICLOXACILLIN [Concomitant]
     Active Substance: DICLOXACILLIN
     Indication: NAUSEA
  5. PREDNISOLONE. [Concomitant]
     Active Substance: PREDNISOLONE
     Indication: EYE SWELLING
     Dosage: 50 MG, ONCE DAILY (QD)
     Route: 048
     Dates: start: 20150629
  6. DICLOXACILLIN [Concomitant]
     Active Substance: DICLOXACILLIN
     Indication: CELLULITIS
     Dosage: 1 G, ONE TIME DOSE
     Route: 048
     Dates: start: 20150704, end: 20150704
  7. LORATADINE. [Concomitant]
     Active Substance: LORATADINE
     Indication: EYE SWELLING
     Dosage: 10 MG, ONCE DAILY (QD)
     Route: 048
     Dates: start: 20150629
  8. FLUCLOXACILLIN [Concomitant]
     Active Substance: FLUCLOXACILLIN
     Indication: CELLULITIS
     Dosage: 2 G, 4X/DAY (QID)
     Route: 042
     Dates: start: 20150701, end: 20150705
  9. CIMZIA [Suspect]
     Active Substance: CERTOLIZUMAB PEGOL
     Dosage: 200 MG, EV 2 WEEKS(QOW)
     Route: 058
     Dates: start: 20140109, end: 20150706
  10. BUSCOPAN [Concomitant]
     Active Substance: BUTYLSCOPOLAMINE BROMIDE
     Indication: PRODUCT USED FOR UNKNOWN INDICATION
     Dosage: 20 MG
     Route: 048

REACTIONS (5)
  - Aortic aneurysm [Fatal]
  - Abdominal discomfort [Not Recovered/Not Resolved]
  - Diarrhoea [Not Recovered/Not Resolved]
  - Vomiting [Not Recovered/Not Resolved]
  - Cellulitis [Not Recovered/Not Resolved]

NARRATIVE: CASE EVENT DATE: 20150629
